FAERS Safety Report 19315710 (Version 4)
Quarter: 2022Q4

REPORT INFORMATION
  Report Type: Report from Study
  Country: CA (occurrence: CA)
  Receive Date: 20210528
  Receipt Date: 20221127
  Transmission Date: 20230113
  Serious: Yes (Other)
  Sender: FDA-Public Use
  Company Number: CA-ABBVIE-21K-028-3922714-00

PATIENT
  Sex: Female

DRUGS (1)
  1. RINVOQ [Suspect]
     Active Substance: UPADACITINIB
     Indication: Rheumatoid arthritis
     Dosage: FORM STRENGTH: 15 MILLIGRAM
     Route: 048
     Dates: start: 20210101

REACTIONS (21)
  - Systemic lupus erythematosus [Unknown]
  - Chest pain [Not Recovered/Not Resolved]
  - Joint instability [Unknown]
  - Foot fracture [Unknown]
  - Sleep disorder [Unknown]
  - Sciatica [Recovering/Resolving]
  - Loss of personal independence in daily activities [Unknown]
  - Impaired healing [Unknown]
  - Rib fracture [Recovering/Resolving]
  - Fall [Recovering/Resolving]
  - Mobility decreased [Unknown]
  - Fatigue [Not Recovered/Not Resolved]
  - Dyspepsia [Unknown]
  - Inflammation [Unknown]
  - Feeling abnormal [Unknown]
  - Rheumatoid arthritis [Unknown]
  - Migraine [Unknown]
  - Ligament rupture [Unknown]
  - Weight decreased [Unknown]
  - Neck pain [Unknown]
  - Lethargy [Unknown]

NARRATIVE: CASE EVENT DATE: 20210101
